FAERS Safety Report 6023225-0 (Version None)
Quarter: 2008Q4

REPORT INFORMATION
  Report Type: 
  Country: None (occurrence: None)
  Receive Date: 20081230
  Receipt Date: 20081218
  Transmission Date: 20090506
  Serious: Yes (Death, Other)
  Sender: FDA-Public Use
  Company Number: JP-WYE-H07311208

PATIENT
  Age: 52 Year
  Sex: Male

DRUGS (1)
  1. ANCARON [Suspect]
     Dosage: 200-300 MG/DAY
     Route: 048
     Dates: start: 20040101, end: 20080101

REACTIONS (2)
  - CARDIAC FAILURE [None]
  - HEPATIC FUNCTION ABNORMAL [None]
